FAERS Safety Report 9741987 (Version 1)
Quarter: 2013Q4

REPORT INFORMATION
  Report Type: Report from Study
  Country: US (occurrence: US)
  Receive Date: 20131210
  Receipt Date: 20131210
  Transmission Date: 20140711
  Serious: Yes (Death)
  Sender: FDA-Public Use
  Company Number: US-ROCHE-1293953

PATIENT
  Sex: Female
  Weight: 103.06 kg

DRUGS (8)
  1. AVASTIN [Suspect]
     Indication: BRAIN NEOPLASM MALIGNANT
     Dosage: 16/FEB/2011
     Route: 042
     Dates: start: 20110128
  2. AVASTIN [Suspect]
     Route: 042
     Dates: start: 20110316
  3. AVASTIN [Suspect]
     Route: 042
     Dates: start: 20110413
  4. AVASTIN [Suspect]
     Dosage: 07/JUL/2011
     Route: 042
  5. AVASTIN [Suspect]
     Dosage: 08/AUG/2011 AND 12/SEP/2011
     Route: 042
  6. AVASTIN [Suspect]
     Route: 042
     Dates: start: 20110608
  7. TYLENOL [Suspect]
     Indication: BRAIN NEOPLASM MALIGNANT
     Dosage: 16/FEB/2011, 16/MAR/2011, 13/APR/2011,  07/JUL/2011, 08/AUG/2011, 12/SEP/2011
     Route: 048
     Dates: start: 20110128
  8. NORMAL SALINE [Concomitant]
     Dosage: 16/FEB/2011, 16/MAR/2011, 13/APR/2011,  07/JUL/2011, 08/AUG/2011, 12/SEP/2011
     Route: 042
     Dates: start: 20110128

REACTIONS (1)
  - Death [Fatal]
